FAERS Safety Report 24697378 (Version 3)
Quarter: 2025Q2

REPORT INFORMATION
  Report Type: Spontaneous
  Country: US (occurrence: US)
  Receive Date: 20241204
  Receipt Date: 20250508
  Transmission Date: 20250717
  Serious: Yes (Hospitalization, Other)
  Sender: SANOFI AVENTIS
  Company Number: US-SA-2024SA357770

PATIENT
  Age: 33 Year
  Sex: Female
  Weight: 72.73 kg

DRUGS (31)
  1. DUPIXENT [Suspect]
     Active Substance: DUPILUMAB
     Indication: Asthma
     Dosage: 300 MG, QOW
     Route: 058
  2. PRIVIGEN [Concomitant]
     Active Substance: HUMAN IMMUNOGLOBULIN G
  3. SOLU-MEDROL [Concomitant]
     Active Substance: METHYLPREDNISOLONE SODIUM SUCCINATE
  4. SODIUM CHLORIDE [Concomitant]
     Active Substance: SODIUM CHLORIDE
  5. SODIUM CHLORIDE [Concomitant]
     Active Substance: SODIUM CHLORIDE
  6. LIDOCAINE [Concomitant]
     Active Substance: LIDOCAINE
  7. EPINEPHRINE [Concomitant]
     Active Substance: EPINEPHRINE
  8. DIPHENHYDRAMINE HYDROCHLORIDE [Concomitant]
     Active Substance: DIPHENHYDRAMINE HYDROCHLORIDE
  9. DIPHENHYDRAMINE [Concomitant]
     Active Substance: DIPHENHYDRAMINE
  10. ACETAMINOPHEN [Concomitant]
     Active Substance: ACETAMINOPHEN
  11. VITAMINS [Concomitant]
     Active Substance: VITAMINS
  12. ZALEPLON [Concomitant]
     Active Substance: ZALEPLON
  13. METOPROLOL SUCCINATE [Concomitant]
     Active Substance: METOPROLOL SUCCINATE
  14. VITAMIN D2 [Concomitant]
     Active Substance: ERGOCALCIFEROL
  15. LEVOTHYROXINE SODIUM [Concomitant]
     Active Substance: LEVOTHYROXINE SODIUM
  16. LEVSIN [Concomitant]
     Active Substance: HYOSCYAMINE SULFATE
  17. PLAQUENIL [Concomitant]
     Active Substance: HYDROXYCHLOROQUINE SULFATE
  18. FAMOTIDINE [Concomitant]
     Active Substance: FAMOTIDINE
  19. CODEINE PHOSPHATE\GUAIFENESIN [Concomitant]
     Active Substance: CODEINE PHOSPHATE\GUAIFENESIN
  20. CLOBETASOL [Concomitant]
     Active Substance: CLOBETASOL
  21. ZYRTEC [Concomitant]
     Active Substance: CETIRIZINE HYDROCHLORIDE
  22. BREZTRI [Concomitant]
     Active Substance: BUDESONIDE\FORMOTEROL\GLYCOPYRROLATE
  23. AZELASTINE HYDROCHLORIDE [Concomitant]
     Active Substance: AZELASTINE HYDROCHLORIDE
  24. BROVANA [Concomitant]
     Active Substance: ARFORMOTEROL TARTRATE
  25. LEVALBUTEROL TARTRATE [Concomitant]
     Active Substance: LEVALBUTEROL TARTRATE
  26. SINGULAIR [Concomitant]
     Active Substance: MONTELUKAST SODIUM
  27. PULMICORT TURBUHALER [Concomitant]
     Active Substance: BUDESONIDE
  28. PHENERGAN [Concomitant]
     Active Substance: PROMETHAZINE HYDROCHLORIDE
  29. LIDODERM [Concomitant]
     Active Substance: LIDOCAINE
  30. CYCLOBENZAPRINE HYDROCHLORIDE [Concomitant]
     Active Substance: CYCLOBENZAPRINE HYDROCHLORIDE
  31. SOLU-MEDROL [Concomitant]
     Active Substance: METHYLPREDNISOLONE SODIUM SUCCINATE

REACTIONS (4)
  - Kidney infection [Unknown]
  - Urinary tract infection [Unknown]
  - Sinusitis [Unknown]
  - Viral infection [Unknown]

NARRATIVE: CASE EVENT DATE: 20241101
